FAERS Safety Report 16106686 (Version 1)
Quarter: 2019Q1

REPORT INFORMATION
  Report Type: Spontaneous
  Country: US (occurrence: US)
  Receive Date: 20190322
  Receipt Date: 20190322
  Transmission Date: 20190418
  Serious: No
  Sender: FDA-Public Use
  Company Number: US-BAYER-2019-051022

PATIENT
  Age: 47 Year
  Sex: Male
  Weight: 93 kg

DRUGS (7)
  1. IBUPROFEN. [Concomitant]
     Active Substance: IBUPROFEN
     Dosage: UNK
  2. MIRALAX [Suspect]
     Active Substance: POLYETHYLENE GLYCOL 3350
     Indication: CONSTIPATION
     Dosage: UNK
  3. MIRALAX [Suspect]
     Active Substance: POLYETHYLENE GLYCOL 3350
     Indication: FLATULENCE
     Dosage: 1 DF
     Route: 048
     Dates: start: 20190307, end: 20190311
  4. MIRALAX [Suspect]
     Active Substance: POLYETHYLENE GLYCOL 3350
     Indication: CONSTIPATION
     Dosage: 1 DF
     Route: 048
     Dates: start: 20190312
  5. MIRALAX [Suspect]
     Active Substance: POLYETHYLENE GLYCOL 3350
     Indication: CONSTIPATION
     Dosage: 1 DF
     Route: 048
     Dates: start: 20190221
  6. ASCORBIC ACID. [Concomitant]
     Active Substance: ASCORBIC ACID
     Dosage: UNK
  7. DULCOLAX (BISACODYL) [Suspect]
     Active Substance: BISACODYL
     Dosage: UNK

REACTIONS (15)
  - Poor quality product administered [Unknown]
  - Drug ineffective for unapproved indication [Unknown]
  - Poor quality product administered [Unknown]
  - Product use issue [Unknown]
  - Eructation [Recovered/Resolved]
  - Off label use [None]
  - Product quality issue [Unknown]
  - Product quality issue [Unknown]
  - Flatulence [Recovered/Resolved]
  - Constipation [Recovered/Resolved]
  - Off label use [Unknown]
  - Headache [Unknown]
  - Muscle spasms [Unknown]
  - Poor quality product administered [Unknown]
  - Product quality issue [Unknown]

NARRATIVE: CASE EVENT DATE: 201902
